FAERS Safety Report 15289490 (Version 1)
Quarter: 2018Q3

REPORT INFORMATION
  Report Type: Spontaneous
  Country: FR (occurrence: FR)
  Receive Date: 20180817
  Receipt Date: 20180817
  Transmission Date: 20181010
  Serious: Yes (Death)
  Sender: FDA-Public Use
  Company Number: FR-TEVA-2018-FR-943157

PATIENT
  Age: 41 Year
  Sex: Male
  Weight: 104 kg

DRUGS (2)
  1. METHOTREXATE. [Suspect]
     Active Substance: METHOTREXATE
     Indication: ACUTE LYMPHOCYTIC LEUKAEMIA
     Route: 042
     Dates: start: 20170731, end: 20180423
  2. PURINETHOL [Suspect]
     Active Substance: MERCAPTOPURINE
     Indication: ACUTE LYMPHOCYTIC LEUKAEMIA
     Route: 048
     Dates: start: 201802

REACTIONS (4)
  - Histiocytosis haematophagic [Fatal]
  - Pancytopenia [Fatal]
  - Febrile bone marrow aplasia [Fatal]
  - Haemorrhagic diathesis [Fatal]

NARRATIVE: CASE EVENT DATE: 201804
